FAERS Safety Report 8433394-0 (Version None)
Quarter: 2012Q2

REPORT INFORMATION
  Report Type: 
  Country: None (occurrence: None)
  Receive Date: 20120613
  Receipt Date: 20120604
  Transmission Date: 20120825
  Serious: Yes (Other)
  Sender: FDA-Public Use
  Company Number: US-B.I. PHARMACEUTICALS,INC./RIDGEFIELD-2011-BP-12575BP

PATIENT
  Sex: Male

DRUGS (11)
  1. TOPROL-XL [Concomitant]
     Indication: ATRIAL FIBRILLATION
     Dosage: 25 MG
     Dates: start: 20110504, end: 20110902
  2. MULTI-VITAMINS [Concomitant]
  3. CALCIUM [Concomitant]
     Indication: SUPPLEMENTATION THERAPY
  4. PRADAXA [Suspect]
     Indication: ATRIAL FLUTTER
  5. GLUCOSAMINE [Concomitant]
     Indication: SUPPLEMENTATION THERAPY
     Dosage: 1500 MG
  6. CLINORIL [Concomitant]
     Indication: ARTHRITIS
     Dosage: 400 MG
     Dates: start: 19930101
  7. FLOMAX [Suspect]
     Indication: URINE FLOW DECREASED
     Dosage: 0.4 MG
     Dates: start: 20080101
  8. PRADAXA [Suspect]
     Indication: ATRIAL FIBRILLATION
     Dosage: 300 MG
     Route: 048
     Dates: start: 20110120
  9. DILTIAZEM [Suspect]
     Indication: ATRIAL FIBRILLATION
     Dates: start: 20110101, end: 20110503
  10. GLUCOSAMINE [Concomitant]
     Indication: ARTHRITIS
  11. FUROSEMIDE [Concomitant]
     Indication: DIURETIC THERAPY
     Dosage: 20 MG

REACTIONS (8)
  - ARTHRALGIA [None]
  - CONTUSION [None]
  - DIZZINESS [None]
  - ATRIAL THROMBOSIS [None]
  - ERYTHEMA [None]
  - LIMB DISCOMFORT [None]
  - PROSTATIC DISORDER [None]
  - OEDEMA PERIPHERAL [None]
